FAERS Safety Report 13456888 (Version 1)
Quarter: 2017Q2

REPORT INFORMATION
  Report Type: Report from Study
  Country: CA (occurrence: CA)
  Receive Date: 20170419
  Receipt Date: 20170419
  Transmission Date: 20170830
  Serious: Yes (Other)
  Sender: FDA-Public Use
  Company Number: CA-JNJFOC-20170414234

PATIENT
  Age: 55 Year
  Sex: Male
  Weight: 84.4 kg

DRUGS (1)
  1. REMICADE [Suspect]
     Active Substance: INFLIXIMAB
     Indication: CROHN^S DISEASE
     Route: 042

REACTIONS (4)
  - Nephrectomy [Unknown]
  - Product use issue [Unknown]
  - Kidney infection [Unknown]
  - Off label use [Unknown]

NARRATIVE: CASE EVENT DATE: 20170304
